FAERS Safety Report 25673094 (Version 1)
Quarter: 2025Q3

REPORT INFORMATION
  Report Type: Spontaneous
  Country: EU (occurrence: None)
  Receive Date: 20250813
  Receipt Date: 20250813
  Transmission Date: 20251021
  Serious: Yes (Life-Threatening, Hospitalization, Other)
  Sender: NATCO PHARMA
  Company Number: EU-NATCOUSA-2025-NATCOUSA-000334

PATIENT
  Age: 54 Year

DRUGS (2)
  1. NITROGLYCERIN [Suspect]
     Active Substance: NITROGLYCERIN
     Indication: Coronary artery dilatation
     Route: 022
  2. ADENOSINE [Suspect]
     Active Substance: ADENOSINE
     Indication: Coronary artery dilatation
     Route: 022

REACTIONS (2)
  - Drug ineffective [Unknown]
  - Off label use [Unknown]
